FAERS Safety Report 21417943 (Version 1)
Quarter: 2022Q4

REPORT INFORMATION
  Report Type: Spontaneous
  Country: FR (occurrence: FR)
  Receive Date: 20221006
  Receipt Date: 20221006
  Transmission Date: 20230113
  Serious: Yes (Hospitalization, Other)
  Sender: FDA-Public Use
  Company Number: FR-BAXTER-2017BAX022340

PATIENT
  Age: 34 Year
  Sex: Female
  Weight: 54 kg

DRUGS (30)
  1. SMOFLIPID [Suspect]
     Active Substance: FISH OIL\MEDIUM-CHAIN TRIGLYCERIDES\OLIVE OIL\SOYBEAN OIL
     Indication: Parenteral nutrition
     Dosage: 20 PERCENT
  2. SMOFLIPID [Suspect]
     Active Substance: FISH OIL\MEDIUM-CHAIN TRIGLYCERIDES\OLIVE OIL\SOYBEAN OIL
     Indication: Malnutrition
     Dosage: BAG ENDING WITH 002E,50G, QD
     Route: 042
  3. SMOFLIPID [Suspect]
     Active Substance: FISH OIL\MEDIUM-CHAIN TRIGLYCERIDES\OLIVE OIL\SOYBEAN OIL
     Dosage: BAG ENDING WITH 002KE,50G
     Route: 042
  4. SMOFLIPID [Suspect]
     Active Substance: FISH OIL\MEDIUM-CHAIN TRIGLYCERIDES\OLIVE OIL\SOYBEAN OIL
     Dosage: BAG ENDING WITH 002E, DOSE RE-INTRODUCED
     Route: 042
  5. SMOFLIPID [Suspect]
     Active Substance: FISH OIL\MEDIUM-CHAIN TRIGLYCERIDES\OLIVE OIL\SOYBEAN OIL
     Dosage: BAG ENDING WITH 002KE, DOSE RE-INTRODUCED
     Route: 042
  6. POTASSIUM CHLORIDE [Suspect]
     Active Substance: POTASSIUM CHLORIDE
     Indication: Malnutrition
     Dosage: POTASSIUM CHLORIDE 10, 500ML, BAG ENDING WITH 002KE, DOSE RE-INTRODUCED
     Route: 042
  7. POTASSIUM CHLORIDE [Suspect]
     Active Substance: POTASSIUM CHLORIDE
     Dosage: POTASSIUM CHLORIDE 10, 500ML, BAG ENDING WITH 002E, DOSE RE-INTRODUCED ()
     Route: 042
  8. POTASSIUM CHLORIDE [Suspect]
     Active Substance: POTASSIUM CHLORIDE
     Dosage: POTASSIUM CHLORIDE 10, 500ML, BAG ENDING WITH 002KE
     Route: 042
  9. POTASSIUM CHLORIDE [Suspect]
     Active Substance: POTASSIUM CHLORIDE
     Dosage: POTASSIUM CHLORIDE 10, 500ML, BAG ENDING WITH 002E
     Route: 042
  10. SODIUM CHLORIDE [Suspect]
     Active Substance: SODIUM CHLORIDE
     Indication: Malnutrition
     Dosage: SODIUM CHLORIDE 20 PERCENT 500ML, BAG ENDING WITH 002KE
     Route: 042
  11. SODIUM CHLORIDE [Suspect]
     Active Substance: SODIUM CHLORIDE
     Dosage: SODIUM CHLORIDE 20% 500ML, BAG ENDING WITH 002E, DOSE RE-INTRODUCED ()
     Route: 042
  12. SODIUM CHLORIDE [Suspect]
     Active Substance: SODIUM CHLORIDE
     Dosage: SODIUM CHLORIDE 20% 500ML, BAG ENDING WITH 002KE, DOSE RE-INTRODUCED ()
     Route: 042
  13. SODIUM CHLORIDE [Suspect]
     Active Substance: SODIUM CHLORIDE
     Dosage: SODIUM CHLORIDE 20% 500ML, BAG ENDING WITH 002E
     Route: 042
  14. DEXTROSE [Suspect]
     Active Substance: DEXTROSE
     Indication: Malnutrition
     Dosage: 280G QD?GLUCOSE 50 PERCENT 1000 ML
     Route: 042
  15. ZINC [Suspect]
     Active Substance: ZINC
     Indication: Parenteral nutrition
     Dosage: INJECTABLE , INJECTABLE SOLUTION FOR INFUSION?0.01 GM
  16. SELENIUM [Suspect]
     Active Substance: SELENIUM
     Indication: Malnutrition
     Dosage: BAG ENDING WITH 002E, BAG ENDING WITH 002KE, DOSE RE-INTRODUCED ()
     Route: 042
  17. SELENIUM [Suspect]
     Active Substance: SELENIUM
  18. .ALPHA.-TOCOPHEROL ACETATE [Suspect]
     Active Substance: .ALPHA.-TOCOPHEROL ACETATE
     Indication: Malnutrition
     Dosage: BAG ENDING WITH 002KE (002E), DOSE RE-INTRODUCED ()
     Route: 042
  19. PHOCYTAN [Suspect]
     Active Substance: .ALPHA.-GLUCOSE-1-PHOSPHATE
     Indication: Malnutrition
     Dosage: PHOCYTAN VIAL (PO4),BAG ENDING WITH 002KE (002E), DOSE RE-INTRODUCED
     Route: 042
  20. PHOCYTAN [Suspect]
     Active Substance: .ALPHA.-GLUCOSE-1-PHOSPHATE
  21. CALCIUM GLUCONATE [Suspect]
     Active Substance: CALCIUM GLUCONATE
     Indication: Malnutrition
     Dosage: CALCIUM GLUCONATE 500 ML 10%, BAG ENDING WITH 002E (002KE)
     Route: 042
  22. CERNEVIT [Suspect]
     Active Substance: VITAMINS
     Indication: Malnutrition
     Dosage: DOSE: ONE UNIT, BAG ENDING WITH 002KE (), 002E (1), DOSE RE-INTRODUCED ()
     Route: 042
  23. CERNEVIT [Suspect]
     Active Substance: VITAMINS
  24. CERNEVIT [Suspect]
     Active Substance: VITAMINS
  25. MAGNESIUM SULFATE [Suspect]
     Active Substance: MAGNESIUM SULFATE
     Indication: Malnutrition
     Dosage: BAG ENDING WITH 002E (002KE), DOSE RE-INTRODUCED ()
     Route: 042
  26. MAGNESIUM SULFATE [Suspect]
     Active Substance: MAGNESIUM SULFATE
  27. MAGNESIUM SULFATE [Suspect]
     Active Substance: MAGNESIUM SULFATE
  28. AMINO ACIDS, SOURCE UNSPECIFIED [Suspect]
     Active Substance: AMINO ACIDS, SOURCE UNSPECIFIED
     Indication: Malnutrition
     Dosage: BAG ENDING WITH 002KE (002E), DOSE RE-INTRODUCED ()
     Route: 042
  29. IRON\MINERALS\POTASSIUM IOD\SODIUM FLUORIDE\SODIUM MOLYBDATE\SODIUM SE [Suspect]
     Active Substance: IRON\MINERALS\POTASSIUM IOD\SODIUM FLUORIDE\SODIUM MOLYBDATE\SODIUM SELENITE\ZINC
     Indication: Parenteral nutrition
     Dosage: 1 IU?CONCENTRATE FOR SOLUTION FOR INFUSION
     Route: 042
  30. VITAMIN K [Suspect]
     Active Substance: PHYTONADIONE
     Indication: Parenteral nutrition
     Dosage: BAG ENDING WITH 002KE, DOSE RE-INTRODUCED
     Route: 042

REACTIONS (5)
  - Enterobacter infection [Recovered/Resolved]
  - Suspected transmission of an infectious agent via product [Recovered/Resolved]
  - Pyrexia [Recovered/Resolved]
  - Pyrexia [Recovered/Resolved]
  - Exposure during pregnancy [Unknown]

NARRATIVE: CASE EVENT DATE: 20170404
